FAERS Safety Report 23271379 (Version 1)
Quarter: 2023Q4

REPORT INFORMATION
  Report Type: Spontaneous
  Country: CN (occurrence: CN)
  Receive Date: 20231207
  Receipt Date: 20231207
  Transmission Date: 20240109
  Serious: Yes (Other)
  Sender: FDA-Public Use
  Company Number: CN-009507513-2312CHN001119

PATIENT
  Age: 72 Year
  Sex: Female

DRUGS (1)
  1. NOXAFIL [Suspect]
     Active Substance: POSACONAZOLE
     Indication: Fungal infection
     Dosage: 1 MILLILITER, QD
     Route: 048
     Dates: start: 20231027, end: 20231030

REACTIONS (3)
  - Vision blurred [Recovering/Resolving]
  - Lacrimation increased [Unknown]
  - Product use issue [Unknown]

NARRATIVE: CASE EVENT DATE: 20231027
